FAERS Safety Report 10465928 (Version 2)
Quarter: 2015Q2

REPORT INFORMATION
  Report Type: Spontaneous
  Country: CA (occurrence: CA)
  Receive Date: 20140922
  Receipt Date: 20150428
  Transmission Date: 20150821
  Serious: Yes (Other)
  Sender: FDA-Public Use
  Company Number: CA-ROCHE-1462827

PATIENT
  Sex: Male

DRUGS (4)
  1. PEGASYS [Suspect]
     Active Substance: PEGINTERFERON ALFA-2A
     Indication: PRODUCT USED FOR UNKNOWN INDICATION
     Route: 058
  2. RIBAVIRIN. [Suspect]
     Active Substance: RIBAVIRIN
     Indication: PRODUCT USED FOR UNKNOWN INDICATION
     Route: 065
  3. VICTRELIS [Suspect]
     Active Substance: BOCEPREVIR
     Indication: PRODUCT USED FOR UNKNOWN INDICATION
     Route: 065
  4. APO-NADOL [Concomitant]
     Active Substance: NADOLOL
     Indication: OROPHARYNGEAL DISCOMFORT
     Route: 065

REACTIONS (13)
  - Oropharyngeal discomfort [Unknown]
  - Oral pain [Unknown]
  - Pain of skin [Unknown]
  - Acne [Unknown]
  - Infection [Unknown]
  - Eye pain [Unknown]
  - Oropharyngeal pain [Unknown]
  - Pharyngeal disorder [Unknown]
  - Pharyngeal ulceration [Unknown]
  - Stomatitis [Unknown]
  - Rash [Unknown]
  - Rhinitis [Unknown]
  - Blood test abnormal [Unknown]
